FAERS Safety Report 22300046 (Version 1)
Quarter: 2023Q2

REPORT INFORMATION
  Report Type: Spontaneous
  Country: US (occurrence: None)
  Receive Date: 20230508
  Receipt Date: 20230508
  Transmission Date: 20230722
  Serious: No
  Sender: FDA-Public Use
  Company Number: None

PATIENT
  Sex: Male
  Weight: 67 kg

DRUGS (1)
  1. TASIGNA [Suspect]
     Active Substance: NILOTINIB
     Indication: Acute lymphocytic leukaemia
     Dosage: FREQUENCY : TWICE A DAY;?
     Route: 048
     Dates: start: 201903

REACTIONS (7)
  - Hypertension [None]
  - Dyspnoea [None]
  - Pancreatitis [None]
  - Herpes zoster [None]
  - Lipase increased [None]
  - Pain [None]
  - Therapy interrupted [None]
